FAERS Safety Report 25681206 (Version 1)
Quarter: 2025Q3

REPORT INFORMATION
  Report Type: Spontaneous
  Country: US (occurrence: US)
  Receive Date: 20250814
  Receipt Date: 20250814
  Transmission Date: 20251020
  Serious: Yes (Hospitalization)
  Sender: THE RITEDOSE CORP
  Company Number: US-THE RITEDOSE CORPORATION-2025RIT000133

PATIENT

DRUGS (1)
  1. IPRATROPIUM BROMIDE AND ALBUTEROL SULFATE [Suspect]
     Active Substance: ALBUTEROL SULFATE\IPRATROPIUM BROMIDE
     Indication: Product used for unknown indication
     Dates: start: 2021, end: 202507

REACTIONS (12)
  - Staphylococcal infection [Unknown]
  - Rhinovirus infection [Unknown]
  - Macular degeneration [Unknown]
  - Headache [Unknown]
  - Eructation [Unknown]
  - Oral mucosal blistering [Unknown]
  - Oral discomfort [Unknown]
  - Dyspepsia [Unknown]
  - Oropharyngeal pain [Unknown]
  - Product taste abnormal [Unknown]
  - Expired product administered [Unknown]
  - Wrong technique in product usage process [Unknown]

NARRATIVE: CASE EVENT DATE: 20250101
